FAERS Safety Report 10268222 (Version 2)
Quarter: 2014Q3

REPORT INFORMATION
  Report Type: Report from Study
  Country: BR (occurrence: BR)
  Receive Date: 20140630
  Receipt Date: 20140728
  Transmission Date: 20150326
  Serious: Yes (Other)
  Sender: FDA-Public Use
  Company Number: PHHY2014BR080237

PATIENT
  Sex: Female
  Weight: 84 kg

DRUGS (1)
  1. DIOVAN [Suspect]
     Active Substance: VALSARTAN
     Indication: HYPERTENSION
     Dosage: 1 TABLET (160 MG) DAILY
     Route: 048
     Dates: end: 2013

REACTIONS (6)
  - Feeling abnormal [Unknown]
  - Osteoarthritis [Unknown]
  - Drug ineffective [Unknown]
  - Diabetes mellitus [Unknown]
  - Cholelithiasis [Unknown]
  - Diabetes mellitus inadequate control [Unknown]
